FAERS Safety Report 6962861-1 (Version None)
Quarter: 2010Q3

REPORT INFORMATION
  Report Type: 
  Country: None (occurrence: None)
  Receive Date: 20100831
  Receipt Date: 20100816
  Transmission Date: 20110219
  Serious: Yes (Other)
  Sender: FDA-Public Use
  Company Number: ACO_01798_2010

PATIENT
  Sex: Female
  Weight: 54.4316 kg

DRUGS (4)
  1. AMPYRA [Suspect]
     Indication: GAIT DISTURBANCE
     Dosage: 10 MG, BID, ORAL
     Route: 048
     Dates: start: 20100601
  2. LISINOPRIL [Concomitant]
  3. COPAXONE [Concomitant]
  4. VITAMIN D [Concomitant]

REACTIONS (6)
  - ANXIETY [None]
  - CONDITION AGGRAVATED [None]
  - DIPLOPIA [None]
  - HEADACHE [None]
  - HYPERTENSION [None]
  - VISUAL IMPAIRMENT [None]
